FAERS Safety Report 5707937-1 (Version None)
Quarter: 2008Q2

REPORT INFORMATION
  Report Type: 
  Country: None (occurrence: None)
  Receive Date: 20080417
  Receipt Date: 20080411
  Transmission Date: 20081010
  Serious: Yes (Death, Other)
  Sender: FDA-Public Use
  Company Number: PHEH2008US01414

PATIENT
  Age: 73 Year
  Sex: Male
  Weight: 104.31 kg

DRUGS (1)
  1. EXJADE [Suspect]
     Indication: CHRONIC MYELOID LEUKAEMIA
     Dosage: 2000 MG, QD
     Route: 048
     Dates: start: 20070621, end: 20080110

REACTIONS (2)
  - DEAFNESS [None]
  - DEATH [None]
